FAERS Safety Report 23135068 (Version 3)
Quarter: 2024Q1

REPORT INFORMATION
  Report Type: Report from Study
  Country: US (occurrence: US)
  Receive Date: 20231101
  Receipt Date: 20240116
  Transmission Date: 20240410
  Serious: Yes (Other)
  Sender: FDA-Public Use
  Company Number: US-TAKEDA-2023TUS104070

PATIENT
  Age: 68 Year
  Sex: Male

DRUGS (2)
  1. HEMOFIL [Suspect]
     Active Substance: ANTIHEMOPHILIC FACTOR HUMAN
     Indication: Haemorrhage
     Dosage: 4100 INTERNATIONAL UNIT
     Route: 050
  2. HEMOFIL [Suspect]
     Active Substance: ANTIHEMOPHILIC FACTOR HUMAN
     Indication: Injury

REACTIONS (6)
  - Haemarthrosis [Not Recovered/Not Resolved]
  - Eye haemorrhage [Unknown]
  - Drug ineffective [Unknown]
  - Retinal tear [Unknown]
  - COVID-19 [Not Recovered/Not Resolved]
  - Limb injury [Unknown]

NARRATIVE: CASE EVENT DATE: 20231020
